FAERS Safety Report 4988227-1 (Version None)
Quarter: 2006Q2

REPORT INFORMATION
  Report Type: 
  Country: None (occurrence: None)
  Receive Date: 20060501
  Receipt Date: 20050408
  Transmission Date: 20061013
  Serious: Yes (Hospitalization, Disabling)
  Sender: FDA-Public Use
  Company Number: US-MERCK-0504USA01302

PATIENT
  Age: 60 Year
  Sex: Female
  Weight: 127 kg

DRUGS (16)
  1. VIOXX [Suspect]
     Indication: OSTEOARTHRITIS
     Route: 048
     Dates: start: 20000101, end: 20040901
  2. HUMULIN [Concomitant]
     Route: 065
  3. GLUCOPHAGE [Concomitant]
     Route: 065
  4. SYNTHROID [Concomitant]
     Route: 065
  5. NEXIUM [Concomitant]
     Route: 065
  6. PLAVIX [Concomitant]
     Route: 065
  7. METAGLIP [Concomitant]
     Route: 065
  8. ATENOLOL [Concomitant]
     Route: 065
  9. LIPITOR [Concomitant]
     Route: 065
  10. HUMALOG [Concomitant]
     Route: 065
  11. XENICAL [Concomitant]
     Route: 065
  12. LEVOTHROID [Concomitant]
     Route: 065
  13. PREVACID [Concomitant]
     Route: 065
  14. PREDNISONE [Concomitant]
     Route: 065
  15. LASIX [Concomitant]
     Route: 065
  16. LEVOXYL [Concomitant]
     Route: 065

REACTIONS (14)
  - ANHEDONIA [None]
  - ARTHROPATHY [None]
  - BLOOD CHOLESTEROL INCREASED [None]
  - BLOOD POTASSIUM INCREASED [None]
  - CARDIAC FAILURE CONGESTIVE [None]
  - CARDIO-RESPIRATORY ARREST [None]
  - CHRONIC FATIGUE SYNDROME [None]
  - CHRONIC OBSTRUCTIVE PULMONARY DISEASE [None]
  - CORONARY ARTERY DISEASE [None]
  - DEPRESSION [None]
  - HYPERTENSION [None]
  - MYOCARDIAL INFARCTION [None]
  - NERVOUS SYSTEM DISORDER [None]
  - PAIN [None]
